FAERS Safety Report 4640877-8 (Version None)
Quarter: 2005Q2

REPORT INFORMATION
  Report Type: 
  Country: None (occurrence: None)
  Receive Date: 20050324
  Receipt Date: 20050103
  Transmission Date: 20051028
  Serious: Yes (Hospitalization, Disabling)
  Sender: FDA-Public Use
  Company Number: 211470

PATIENT
  Age: 81 Year
  Sex: Male
  Weight: 60.8 kg

DRUGS (12)
  1. AVASTIN [Suspect]
     Indication: COLON CANCER METASTATIC
     Dosage: 300 MG, Q3W, INTRAVENOUS
     Route: 042
     Dates: start: 20041019, end: 20041221
  2. FLUOROURACIL [Concomitant]
  3. LEUCOVORIN CALCIUM [Concomitant]
  4. IRINOTECAN HCL [Concomitant]
  5. OXYCONTIN [Concomitant]
  6. OXYCODONE HCL (OXYCODONE HYDROCHLORIDE) [Concomitant]
  7. REGLAN [Concomitant]
  8. PREVACID [Concomitant]
  9. ARANESP [Concomitant]
  10. VICOPROFEN (IBUPROFEN, HYDROCODONE BITARTRATE) [Concomitant]
  11. COUMADIN [Concomitant]
  12. SENOKOT [Concomitant]

REACTIONS (1)
  - CEREBROVASCULAR ACCIDENT [None]
